FAERS Safety Report 5444606-X (Version None)
Quarter: 2007Q3

REPORT INFORMATION
  Report Type: 
  Country: None (occurrence: None)
  Receive Date: 20070906
  Receipt Date: 20070828
  Transmission Date: 20080115
  Serious: Yes (Life-Threatening)
  Sender: FDA-Public Use
  Company Number: -BAXTER-20040700346

PATIENT
  Age: 36 Year
  Sex: Female
  Weight: 68 kg

DRUGS (5)
  1. SUPRANE [Suspect]
     Indication: ANAESTHESIA
     Route: 055
  2. HYDROXYZINE [Concomitant]
     Indication: PREMEDICATION
     Route: 048
  3. PROPOFOL [Concomitant]
     Indication: INDUCTION OF ANAESTHESIA
     Route: 065
  4. SUFENTANIL CITRATE [Concomitant]
     Indication: INDUCTION OF ANAESTHESIA
     Route: 065
  5. ATRACURIUM BESYLATE [Concomitant]
     Indication: INDUCTION OF ANAESTHESIA
     Route: 065

REACTIONS (2)
  - CARDIAC ARREST [None]
  - OVERDOSE [None]
